FAERS Safety Report 13539865 (Version 1)
Quarter: 2017Q2

REPORT INFORMATION
  Report Type: Spontaneous
  Country: US (occurrence: US)
  Receive Date: 20170512
  Receipt Date: 20170512
  Transmission Date: 20170830
  Serious: No
  Sender: FDA-Public Use
  Company Number: US-JNJFOC-20170430273

PATIENT
  Age: 52 Year
  Sex: Female
  Weight: 59.88 kg

DRUGS (4)
  1. ZYRTEC [Suspect]
     Active Substance: CETIRIZINE HYDROCHLORIDE
     Indication: MULTIPLE ALLERGIES
     Dosage: 1 TABLET, HAVE BEEN USING 3-4 WEEKS AGO
     Route: 048
     Dates: end: 20170420
  2. ZYRTEC [Suspect]
     Active Substance: CETIRIZINE HYDROCHLORIDE
     Route: 048
  3. VITAMIN D [Concomitant]
     Active Substance: CHOLECALCIFEROL
     Indication: ROUTINE HEALTH MAINTENANCE
     Dosage: OVER 2 YEARS
     Route: 065
  4. IRON [Concomitant]
     Active Substance: IRON
     Indication: BLOOD IRON DECREASED
     Dosage: AS NECESSARY
     Route: 065

REACTIONS (3)
  - Hypersensitivity [Recovered/Resolved]
  - Swelling [Recovered/Resolved]
  - Pruritus [Recovered/Resolved]
